FAERS Safety Report 23610180 (Version 2)
Quarter: 2024Q3

REPORT INFORMATION
  Report Type: Report from Study
  Country: US (occurrence: US)
  Receive Date: 20240308
  Receipt Date: 20240702
  Transmission Date: 20241017
  Serious: Yes (Other)
  Sender: RANBAXY
  Company Number: US-SUN PHARMACEUTICAL INDUSTRIES LTD-2024R1-435012

PATIENT
  Sex: Male

DRUGS (1)
  1. ISOTRETINOIN [Suspect]
     Active Substance: ISOTRETINOIN
     Indication: Acne
     Dosage: UNK
     Route: 065
     Dates: end: 20240124

REACTIONS (6)
  - Suicidal ideation [Unknown]
  - Mood altered [Unknown]
  - Therapy cessation [Unknown]
  - Dry skin [Unknown]
  - Lip exfoliation [Unknown]
  - Epistaxis [Unknown]
